FAERS Safety Report 20609277 (Version 1)
Quarter: 2022Q1

REPORT INFORMATION
  Report Type: Spontaneous
  Country: None (occurrence: US)
  Receive Date: 20220317
  Receipt Date: 20220317
  Transmission Date: 20220423
  Serious: No
  Sender: FDA-Public Use
  Company Number: US-Stason Pharmaceuticals, Inc.-2126901

PATIENT
  Age: 13 Year
  Sex: Male
  Weight: 38.182 kg

DRUGS (1)
  1. CYPROHEPTADINE [Suspect]
     Active Substance: CYPROHEPTADINE

REACTIONS (1)
  - Rash [Recovering/Resolving]

NARRATIVE: CASE EVENT DATE: 20220314
